FAERS Safety Report 6087554-7 (Version None)
Quarter: 2009Q1

REPORT INFORMATION
  Report Type: 
  Country: None (occurrence: None)
  Receive Date: 20090223
  Receipt Date: 20090212
  Transmission Date: 20090719
  Serious: Yes (Other)
  Sender: FDA-Public Use
  Company Number: PHBS2009AU00810

PATIENT
  Age: 30 Year
  Sex: Male

DRUGS (3)
  1. CLOFAZIMINE [Suspect]
     Indication: LEPROSY
     Dosage: 50 MG/DAY
  2. RIFAMPICIN [Suspect]
     Dosage: 600 MG MONTHLY
  3. DAPSONE [Suspect]
     Dosage: 100 MG DAILY

REACTIONS (6)
  - ERYTHEMA [None]
  - GRANULOMA [None]
  - LEPROSY [None]
  - SKIN INDURATION [None]
  - SKIN PLAQUE [None]
  - TUBERCULOID LEPROSY [None]
